FAERS Safety Report 4340751-0 (Version None)
Quarter: 2004Q2

REPORT INFORMATION
  Report Type: 
  Country: None (occurrence: None)
  Receive Date: 20040414
  Receipt Date: 20031230
  Transmission Date: 20050107
  Serious: Yes (Death, Life-Threatening, Hospitalization, Disabling)
  Sender: FDA-Public Use
  Company Number: D01200302050

PATIENT
  Age: 83 Year
  Sex: Female

DRUGS (3)
  1. CLOPIDOGREL BISULFATE [Suspect]
     Indication: ANGIOPATHY
     Dosage: 75 MG QD, 150 MG/DAY FOR 2 WEEKS FOLLOWING BY 300
     Route: 048
     Dates: start: 20030919, end: 20031225
  2. CLOPIDOGREL BISULFATE [Suspect]
     Indication: PROPHYLAXIS
     Dosage: 75 MG QD, 150 MG/DAY FOR 2 WEEKS FOLLOWING BY 300
     Route: 048
     Dates: start: 20030919, end: 20031225
  3. IRBESARTAN/ PLACEBO - TABLET - 150 MG [Suspect]
     Dates: start: 20030917

REACTIONS (4)
  - HAEMORRHAGIC STROKE [None]
  - REFUSAL OF TREATMENT BY PATIENT [None]
  - SUBARACHNOID HAEMORRHAGE [None]
  - SUBDURAL HAEMATOMA [None]
